FAERS Safety Report 5226867-5 (Version None)
Quarter: 2007Q1

REPORT INFORMATION
  Report Type: 
  Country: None (occurrence: None)
  Receive Date: 20070130
  Receipt Date: 20070127
  Transmission Date: 20070707
  Serious: Yes (Hospitalization)
  Sender: FDA-Public Use
  Company Number: 232067

PATIENT
  Age: 65 Year
  Sex: Female
  Weight: 57 kg

DRUGS (3)
  1. AVASTIN [Suspect]
     Indication: NEOPLASM MALIGNANT
     Dosage: 285 MG, INTRAVENOUS
     Route: 042
     Dates: start: 20060718, end: 20060718
  2. ELOXATIN [Suspect]
     Indication: NEOPLASM MALIGNANT
     Dosage: 137 MG, INTRAVENOUS
     Route: 042
     Dates: start: 20060718, end: 20060718
  3. FLUOROURACIL [Suspect]
     Indication: NEOPLASM MALIGNANT
     Dosage: 1620 MG, INTRAVENOUS
     Route: 042
     Dates: start: 20060718, end: 20060718

REACTIONS (2)
  - CHOLECYSTITIS INFECTIVE [None]
  - GANGRENE [None]
